FAERS Safety Report 10694263 (Version 2)
Quarter: 2015Q1

REPORT INFORMATION
  Report Type: Report from Study
  Country: US (occurrence: US)
  Receive Date: 20150106
  Receipt Date: 20150128
  Transmission Date: 20150721
  Serious: Yes (Death)
  Sender: FDA-Public Use
  Company Number: US-ROCHE-1517955

PATIENT
  Age: 52 Year
  Sex: Male

DRUGS (1)
  1. AVASTIN [Suspect]
     Active Substance: BEVACIZUMAB
     Indication: PRODUCT USED FOR UNKNOWN INDICATION
     Route: 065
     Dates: start: 201212, end: 201403

REACTIONS (3)
  - Renal failure [Fatal]
  - Metastatic neoplasm [Fatal]
  - Hepatic failure [Fatal]

NARRATIVE: CASE EVENT DATE: 20140619
